FAERS Safety Report 10447275 (Version 1)
Quarter: 2014Q3

REPORT INFORMATION
  Report Type: Spontaneous
  Country: FR (occurrence: FR)
  Receive Date: 20140911
  Receipt Date: 20140911
  Transmission Date: 20150326
  Serious: Yes (Other)
  Sender: FDA-Public Use
  Company Number: FR-TEVA-506738ISR

PATIENT
  Sex: Female

DRUGS (4)
  1. MOLSIDOMINE [Concomitant]
     Active Substance: MOLSIDOMINE
     Indication: HYPERTENSION
     Dosage: FOR FEW YEARS / ONGOING
  2. SPIRONOLACTONE 25 MG [Concomitant]
     Active Substance: SPIRONOLACTONE
     Indication: HYPERTENSION
     Dosage: FOR FEW YEARS /ONGOING
  3. PROPRANOLOL RATHIOPHARM LP [Suspect]
     Active Substance: PROPRANOLOL HYDROCHLORIDE
     Indication: HYPERTENSION
     Dosage: 160 MILLIGRAM DAILY;
     Dates: end: 201312
  4. PRITORPLUS [Concomitant]
     Active Substance: HYDROCHLOROTHIAZIDE\TELMISARTAN
     Indication: HYPERTENSION
     Dosage: FOR FEW YEARS / ONGOING

REACTIONS (3)
  - Gait disturbance [Recovered/Resolved]
  - Product substitution issue [Recovered/Resolved]
  - Dyspnoea [Recovered/Resolved]
